FAERS Safety Report 23798539 (Version 2)
Quarter: 2024Q3

REPORT INFORMATION
  Report Type: Spontaneous
  Country: JP (occurrence: JP)
  Receive Date: 20240430
  Receipt Date: 20240722
  Transmission Date: 20241016
  Serious: Yes (Hospitalization, Other)
  Sender: PFIZER
  Company Number: JP-PFIZER INC-202400095400

PATIENT
  Age: 81 Year
  Sex: Female
  Weight: 48.7 kg

DRUGS (6)
  1. LORBRENA [Suspect]
     Active Substance: LORLATINIB
     Indication: Lung adenocarcinoma
     Dosage: 100 MG, 1X/DAY
     Route: 048
     Dates: start: 20240228, end: 20240424
  2. CELECOXIB [Concomitant]
     Active Substance: CELECOXIB
     Dosage: 200 MG (2 TABLETS), DAILY
     Route: 048
  3. MIROGABALIN BESYLATE [Concomitant]
     Active Substance: MIROGABALIN BESYLATE
     Dosage: 5 MG (2 TABLETS), DAILY
     Route: 048
  4. CALONAL [Concomitant]
     Active Substance: ACETAMINOPHEN
     Route: 048
  5. CARBAZOCHROME SODIUM SULFONATE [Concomitant]
     Active Substance: CARBAZOCHROME SODIUM SULFONATE
     Dosage: 90 MG (3 TABLETS), DAILY
     Route: 048
  6. TRANEXAMIC ACID [Concomitant]
     Active Substance: TRANEXAMIC ACID
     Dosage: 750 MG (3 TABLETS), DAILY
     Route: 048

REACTIONS (1)
  - Pulmonary toxicity [Recovered/Resolved]

NARRATIVE: CASE EVENT DATE: 20240424
